FAERS Safety Report 4533877-X (Version None)
Quarter: 2004Q4

REPORT INFORMATION
  Report Type: 
  Country: None (occurrence: None)
  Receive Date: 20041214
  Receipt Date: 20040901
  Transmission Date: 20050328
  Serious: No
  Sender: FDA-Public Use
  Company Number: US-0409105321

PATIENT
  Age: 41 Year
  Sex: Male
  Weight: 134 kg

DRUGS (5)
  1. CIALIS [Suspect]
     Indication: ERECTILE DYSFUNCTION
     Dosage: 20 MG AS NEEDED
     Dates: start: 20040828
  2. CAPTOPRIL (CAPTOPRIL BIOCHEMIE) [Concomitant]
  3. ACTOS [Concomitant]
  4. RELI-ON [Concomitant]
  5. VIAGRA [Concomitant]

REACTIONS (1)
  - THERAPEUTIC RESPONSE DECREASED [None]
